APPROVED DRUG PRODUCT: CHILDREN'S CETIRIZINE HYDROCHLORIDE HIVES RELIEF
Active Ingredient: CETIRIZINE HYDROCHLORIDE
Strength: 5MG/5ML
Dosage Form/Route: SOLUTION;ORAL
Application: A091327 | Product #002
Applicant: BAJAJ MEDICAL LLC
Approved: Oct 17, 2011 | RLD: No | RS: No | Type: OTC